FAERS Safety Report 11820639 (Version 1)
Quarter: 2015Q4

REPORT INFORMATION
  Report Type: Spontaneous
  Country: US (occurrence: US)
  Receive Date: 20151210
  Receipt Date: 20151210
  Transmission Date: 20160305
  Serious: No
  Sender: FDA-Public Use
  Company Number: US-JNJFOC-20150709803

PATIENT
  Sex: Female

DRUGS (16)
  1. GLUCOSAMINE [Concomitant]
     Active Substance: GLUCOSAMINE
  2. TRAMADOL. [Concomitant]
     Active Substance: TRAMADOL
  3. IMBRUVICA [Suspect]
     Active Substance: IBRUTINIB
     Indication: CHRONIC LYMPHOCYTIC LEUKAEMIA
     Route: 048
  4. BENZONATATE. [Concomitant]
     Active Substance: BENZONATATE
  5. NOVOLOG [Concomitant]
     Active Substance: INSULIN ASPART
  6. VENLAFAXINE HYDROCHLORIDE. [Concomitant]
     Active Substance: VENLAFAXINE HYDROCHLORIDE
  7. VITAMIN D [Concomitant]
     Active Substance: CHOLECALCIFEROL
  8. CALCIUM [Concomitant]
     Active Substance: CALCIUM
  9. PROAIR HFA [Concomitant]
     Active Substance: ALBUTEROL SULFATE
  10. TEMAZEPAM. [Concomitant]
     Active Substance: TEMAZEPAM
  11. FLUTICASONE PROPIONATE. [Concomitant]
     Active Substance: FLUTICASONE PROPIONATE
  12. VOLTAREN [Concomitant]
     Active Substance: DICLOFENAC SODIUM
  13. TYLENOL 8 HR [Concomitant]
     Active Substance: ACETAMINOPHEN
  14. LOVASTATIN. [Concomitant]
     Active Substance: LOVASTATIN
  15. LEVEMIR [Concomitant]
     Active Substance: INSULIN DETEMIR
  16. OMEPRAZOLE. [Concomitant]
     Active Substance: OMEPRAZOLE

REACTIONS (2)
  - Incorrect dose administered [Recovered/Resolved]
  - Nausea [Unknown]
